FAERS Safety Report 19965304 (Version 1)
Quarter: 2021Q4

REPORT INFORMATION
  Report Type: Spontaneous
  Country: JP (occurrence: JP)
  Receive Date: 20211018
  Receipt Date: 20211018
  Transmission Date: 20220303
  Serious: Yes (Hospitalization, Other)
  Sender: FDA-Public Use
  Company Number: JP-NAPPMUNDI-GBR-2020-0082277

PATIENT
  Age: 17 Year
  Sex: Male
  Weight: 62 kg

DRUGS (22)
  1. OXYCODONE [Suspect]
     Active Substance: OXYCODONE
     Indication: Pain in extremity
     Dosage: 60 MILLIGRAM, QD
     Route: 065
  2. OXYCODONE [Suspect]
     Active Substance: OXYCODONE
     Dosage: UNK
     Route: 065
  3. OXYCODONE [Suspect]
     Active Substance: OXYCODONE
     Dosage: 90 MILLIGRAM, QD
     Route: 065
  4. OXYCODONE [Suspect]
     Active Substance: OXYCODONE
     Dosage: TAPERING
     Route: 065
  5. OXYCODONE [Suspect]
     Active Substance: OXYCODONE
     Dosage: LINEARLY DECREASED, AT A RATE OF 5 MG/3?4 DAYS
     Route: 065
  6. OXYCODONE [Suspect]
     Active Substance: OXYCODONE
     Dosage: UNK
     Route: 065
     Dates: start: 201709
  7. OXYCODONE [Suspect]
     Active Substance: OXYCODONE
     Dosage: 80 MG, QD (OXYCONTIN), TABLET
     Route: 048
     Dates: start: 20170901, end: 20171213
  8. OXYCODONE [Suspect]
     Active Substance: OXYCODONE
     Dosage: 10 MILLIGRAM, PRN OXYNORM POWDER
     Route: 048
     Dates: start: 20170901, end: 20171213
  9. OXYCODONE [Suspect]
     Active Substance: OXYCODONE
     Dosage: 80 MILLIGRAM, QD, TABLET
     Route: 048
     Dates: start: 20180113
  10. OXYCODONE [Suspect]
     Active Substance: OXYCODONE
     Dosage: 2.5 MILLIGRAM, PRN OXYNORM POWDER
     Route: 048
     Dates: start: 20180113
  11. OXYCODONE [Suspect]
     Active Substance: OXYCODONE
     Dosage: 10 MILLIGRAM, QD (OXYCONTIN), TABLET
     Route: 048
     Dates: start: 20180221
  12. OXYCODONE [Suspect]
     Active Substance: OXYCODONE
     Dosage: 2.5 MILLIGRAM, QD, OXYNORM POWDER
     Route: 048
     Dates: start: 20180221
  13. OXYCODONE [Suspect]
     Active Substance: OXYCODONE
     Dosage: 20 MILLIGRAM, QD (OXYCONTIN), TABLET
     Route: 048
     Dates: start: 20180307
  14. OXYCODONE [Suspect]
     Active Substance: OXYCODONE
     Dosage: 2.5 MILLIGRAM, PRN, OXYNORM POWDER
     Route: 048
     Dates: start: 20180307
  15. OXYCODONE [Suspect]
     Active Substance: OXYCODONE
     Dosage: 30 MILLIGRAM, QD (OXYCONTIN), TABLET
     Route: 048
     Dates: start: 20180314
  16. OXYCODONE [Suspect]
     Active Substance: OXYCODONE
     Dosage: 2.5 MILLIGRAM, QD, OXYNORM POWDER
     Route: 048
     Dates: start: 20180314
  17. OXYCODONE [Suspect]
     Active Substance: OXYCODONE
     Dosage: 40 MILLIGRAM, QD (OXYCONTIN), TABLET
     Route: 048
     Dates: start: 20180411
  18. OXYCODONE [Suspect]
     Active Substance: OXYCODONE
     Dosage: 2.5 MILLIGRAM, PRN,OXYNORM POWDER
     Route: 048
     Dates: start: 20180411
  19. OXYCODONE [Suspect]
     Active Substance: OXYCODONE
     Dosage: 40 MILLIGRAM, QD (OXYCONTIN), TABLET
     Route: 048
     Dates: start: 20180725
  20. OXYCODONE [Suspect]
     Active Substance: OXYCODONE
     Dosage: 5 MILLIGRAM, PRN, OXYNORM POWDER
     Route: 048
     Dates: start: 20180725
  21. OXYCODONE [Suspect]
     Active Substance: OXYCODONE
     Dosage: 50 MILLIGRAM, QD (OXYCONTIN), TABLET
     Route: 048
     Dates: start: 20180829
  22. OXYCODONE [Suspect]
     Active Substance: OXYCODONE
     Dosage: 5 MILLIGRAM, PRN, OXYNORM POWDER
     Dates: start: 20180829

REACTIONS (4)
  - Intentional product misuse [Unknown]
  - Drug use disorder [Recovered/Resolved]
  - Restless legs syndrome [Recovered/Resolved]
  - Drug withdrawal syndrome [Unknown]
